FAERS Safety Report 8772864 (Version 1)
Quarter: 2012Q4

REPORT INFORMATION
  Report Type: 
  Country: BE (occurrence: BE)
  Receive Date: 20120908
  Receipt Date: 20120908
  Transmission Date: 20130627
  Serious: Yes (Congenital Anomaly)
  Sender: FDA-Public Use
  Company Number: BE-TEVA-357618ISR

PATIENT

DRUGS (1)
  1. TAMOXIFEN [Suspect]
     Route: 064

REACTIONS (1)
  - Congenital anomaly [Unknown]
